FAERS Safety Report 10550083 (Version 1)
Quarter: 2014Q4

REPORT INFORMATION
  Report Type: Spontaneous
  Country: DE (occurrence: DE)
  Receive Date: 20141028
  Receipt Date: 20141028
  Transmission Date: 20150529
  Serious: Yes (Hospitalization)
  Sender: FDA-Public Use
  Company Number: GXKR2014DE003950

PATIENT

DRUGS (6)
  1. QUILONUM [Concomitant]
     Active Substance: LITHIUM CARBONATE
     Indication: SCHIZOAFFECTIVE DISORDER
     Dosage: 450 MG, UNK
     Route: 048
  2. PANTOZOL [Concomitant]
     Active Substance: PANTOPRAZOLE SODIUM
     Dosage: 20 MG, UNK
     Route: 048
  3. EUTHYROX [Concomitant]
     Active Substance: LEVOTHYROXINE SODIUM
     Indication: HYPOTHYROIDISM
     Dosage: 100 UG, UNK
     Route: 048
  4. XARELTO [Concomitant]
     Active Substance: RIVAROXABAN
     Indication: ATRIAL FIBRILLATION
     Dosage: 15 MG, UNK
     Route: 048
  5. CLOZAPINE. [Suspect]
     Active Substance: CLOZAPINE
     Indication: SCHIZOAFFECTIVE DISORDER
     Dosage: 250 MG, UNK
     Route: 048
  6. LAMOTRIGIN [Concomitant]
     Active Substance: LAMOTRIGINE
     Indication: DYSKINESIA
     Dosage: 225 MG, UNK
     Route: 048

REACTIONS (1)
  - Agranulocytosis [Recovered/Resolved]
